FAERS Safety Report 25071632 (Version 1)
Quarter: 2025Q1

REPORT INFORMATION
  Report Type: Spontaneous
  Country: US (occurrence: US)
  Receive Date: 20250313
  Receipt Date: 20250313
  Transmission Date: 20250409
  Serious: Yes (Life-Threatening, Other)
  Sender: BAXTER
  Company Number: US-BAXTER-2025BAX012264

PATIENT

DRUGS (1)
  1. MILRINONE [Suspect]
     Active Substance: MILRINONE
     Route: 065

REACTIONS (3)
  - Hypoxia [Unknown]
  - Incorrect dose administered [Unknown]
  - Device infusion issue [Unknown]
